FAERS Safety Report 14984101 (Version 1)
Quarter: 2018Q2

REPORT INFORMATION
  Report Type: Spontaneous
  Country: US (occurrence: US)
  Receive Date: 20180607
  Receipt Date: 20180607
  Transmission Date: 20180711
  Serious: No
  Sender: FDA-Public Use
  Company Number: US-MYLANLABS-2018M1033162

PATIENT
  Sex: Female
  Weight: 113 kg

DRUGS (2)
  1. CLOBETASOL PROPIONATE FOAM [Suspect]
     Active Substance: CLOBETASOL PROPIONATE
     Indication: ALOPECIA
     Dosage: UNK
     Route: 003
  2. CLOBETASOL PROPIONATE FOAM [Suspect]
     Active Substance: CLOBETASOL PROPIONATE
     Indication: DERMATITIS

REACTIONS (2)
  - Incorrect dose administered [Not Recovered/Not Resolved]
  - No adverse event [Unknown]
